FAERS Safety Report 12877206 (Version 4)
Quarter: 2016Q4

REPORT INFORMATION
  Report Type: Report from Study
  Country: None (occurrence: LB)
  Receive Date: 20161024
  Receipt Date: 20161208
  Transmission Date: 20170207
  Serious: Yes (Other)
  Sender: FDA-Public Use
  Company Number: LB-ABBVIE-16P-093-1761105-00

PATIENT
  Age: 43 Year
  Sex: Male
  Weight: 85 kg

DRUGS (10)
  1. HUMIRA [Suspect]
     Active Substance: ADALIMUMAB
     Indication: ANKYLOSING SPONDYLITIS
     Dosage: SECOND LOADING DOSE (2 WEEKS AFTER 1ST LOADING DOSE)
     Route: 058
     Dates: start: 2011, end: 2011
  2. LASONET [Concomitant]
     Indication: HYPERTENSION
     Route: 048
  3. PREDNISONE. [Suspect]
     Active Substance: PREDNISONE
     Indication: INTESTINAL OBSTRUCTION
     Route: 048
     Dates: start: 20161011
  4. HUMIRA [Suspect]
     Active Substance: ADALIMUMAB
     Indication: CROHN^S DISEASE
     Dosage: FIRST LOADING DOSE
     Route: 058
     Dates: start: 201106, end: 201106
  5. MONOCINQUE RETARD [Concomitant]
     Indication: HYPERTENSION
     Route: 048
  6. HUMIRA [Suspect]
     Active Substance: ADALIMUMAB
     Dosage: 2 WEEKS AFTER 2ND LOADING DOSE
     Route: 058
     Dates: start: 2011
  7. CONCOR [Concomitant]
     Active Substance: BISOPROLOL FUMARATE
     Indication: HYPERTENSION
     Route: 048
  8. ALDACTONE [Concomitant]
     Active Substance: SPIRONOLACTONE
     Indication: HYPERTENSION
     Route: 048
  9. PREDNISONE. [Suspect]
     Active Substance: PREDNISONE
     Indication: INTESTINAL OBSTRUCTION
     Route: 048
  10. CYNT [Concomitant]
     Active Substance: MOXONIDINE
     Indication: HYPERTENSION
     Route: 048

REACTIONS (4)
  - Weight increased [Unknown]
  - Intestinal stenosis [Unknown]
  - Abdominal distension [Not Recovered/Not Resolved]
  - Intestinal obstruction [Recovering/Resolving]

NARRATIVE: CASE EVENT DATE: 2016
